FAERS Safety Report 16720990 (Version 1)
Quarter: 2019Q3

REPORT INFORMATION
  Report Type: Spontaneous
  Country: US (occurrence: US)
  Receive Date: 20190703
  Receipt Date: 20190703
  Transmission Date: 20191005
  Serious: Yes (Hospitalization)
  Sender: FDA-Public Use
  Company Number: None

PATIENT
  Age: 63 Year
  Sex: Female

DRUGS (13)
  1. CARVEDILOL TAB [Concomitant]
     Active Substance: CARVEDILOL
  2. PREDNISON TAB [Concomitant]
  3. ASPIRIN TAB [Concomitant]
  4. FLUTICASONE SPR [Concomitant]
  5. METHOCARBAM TAB [Concomitant]
  6. MONTELUKAST TAB [Concomitant]
  7. OXYCOD/APAP TAB [Concomitant]
  8. LEFLUNOMIDETAB [Concomitant]
  9. PAROXETINE TAB [Concomitant]
  10. METOCARBAM TAB [Concomitant]
  11. AMLODIPINE TAB [Concomitant]
  12. CIMZIA [Suspect]
     Active Substance: CERTOLIZUMAB PEGOL
     Indication: PRODUCT USED FOR UNKNOWN INDICATION
     Route: 058
     Dates: start: 2019
  13. HYDROXYCHLOR TAB [Concomitant]

REACTIONS (1)
  - Knee operation [None]

NARRATIVE: CASE EVENT DATE: 20190609
